FAERS Safety Report 8602484-1 (Version None)
Quarter: 2012Q3

REPORT INFORMATION
  Report Type: 
  Country: None (occurrence: None)
  Receive Date: 20120423
  Receipt Date: 20081111
  Transmission Date: 20120928
  Serious: Yes (Other)
  Sender: FDA-Public Use
  Company Number: PHEH2008US10126

PATIENT
  Age: 71 Year
  Sex: Female
  Weight: 54 kg

DRUGS (7)
  1. ACTOS (PIOGLITAZONE, PIOGLITAZONE HYDROCHLORIDE) [Concomitant]
  2. AVAPRO [Concomitant]
  3. NORVASC [Concomitant]
  4. TOPROL-XL [Concomitant]
  5. FEMARA [Suspect]
     Indication: BREAST CANCER STAGE I
     Dosage: 2 MG, QD, ORAL
     Route: 048
     Dates: start: 20081020, end: 20081105
  6. ZOCOR [Concomitant]
  7. METFFORMIN HYDROCHLORIDE [Concomitant]

REACTIONS (3)
  - PALPITATIONS [None]
  - BLOOD PRESSURE INCREASED [None]
  - NAUSEA [None]
